FAERS Safety Report 10158736 (Version 2)
Quarter: 2014Q2

REPORT INFORMATION
  Report Type: Spontaneous
  Country: US (occurrence: US)
  Receive Date: 20140508
  Receipt Date: 20140508
  Transmission Date: 20141212
  Serious: No
  Sender: FDA-Public Use
  Company Number: US-TEVA-410019USA

PATIENT
  Age: 29 Year
  Sex: Female

DRUGS (1)
  1. CLARAVIS [Suspect]
     Dates: start: 20130204, end: 20130501

REACTIONS (4)
  - Dry eye [Recovering/Resolving]
  - Corneal abrasion [Recovering/Resolving]
  - Vision blurred [Unknown]
  - Headache [Unknown]
